FAERS Safety Report 5649200-3 (Version None)
Quarter: 2008Q1

REPORT INFORMATION
  Report Type: 
  Country: None (occurrence: None)
  Receive Date: 20080131
  Receipt Date: 20071027
  Transmission Date: 20080703
  Serious: No
  Sender: FDA-Public Use
  Company Number: US200709006652

PATIENT
  Age: 60 Year
  Sex: Female
  Weight: 117.9 kg

DRUGS (8)
  1. BYETTA [Suspect]
     Indication: TYPE 2 DIABETES MELLITUS
     Dosage: 5 UG, 2/D, SUBCUTANEOUS; 5 UG, 2/D, SUBCUTANEOUS
     Route: 058
     Dates: start: 20070922
  2. BYETTA [Suspect]
     Indication: TYPE 2 DIABETES MELLITUS
     Dosage: 5 UG, 2/D, SUBCUTANEOUS; 5 UG, 2/D, SUBCUTANEOUS
     Route: 058
     Dates: start: 20070922
  3. BYETTA [Suspect]
  4. EXENATIDE 5MCG PEN, DISPOSABLE DEVICE (EXENATIDE PEN (5MCG)) PEN,DISPO [Concomitant]
  5. EXENATIDE 5MCG PEN, DISPOSABLE DEVICE 9EXENATIDE PEN (5MCG)) PEN,DISPO [Concomitant]
  6. EXENATIDE 5MCG PEN, DISPOSABLE DEVICE (EXENATIDE PEN (5 MCG)) PEN, DIS [Concomitant]
  7. AVANDIA [Concomitant]
  8. METFORMIN HCL [Concomitant]

REACTIONS (5)
  - COUGH [None]
  - DYSGEUSIA [None]
  - INJECTION SITE REACTION [None]
  - NASOPHARYNGITIS [None]
  - WEIGHT DECREASED [None]
